FAERS Safety Report 14267774 (Version 1)
Quarter: 2017Q4

REPORT INFORMATION
  Report Type: Spontaneous
  Country: US (occurrence: US)
  Receive Date: 20171211
  Receipt Date: 20171211
  Transmission Date: 20180321
  Serious: Yes (Other)
  Sender: FDA-Public Use
  Company Number: None

PATIENT
  Age: 50 Year
  Sex: Female
  Weight: 112.5 kg

DRUGS (7)
  1. VAGUS NERVE STIMULATOR [Concomitant]
  2. VITAMIN D [Concomitant]
     Active Substance: CHOLECALCIFEROL
  3. VIMPAT [Concomitant]
     Active Substance: LACOSAMIDE
  4. ZEMBRACE SYMTOUCH [Suspect]
     Active Substance: SUMATRIPTAN SUCCINATE
     Indication: MIGRAINE PROPHYLAXIS
     Dosage: OTHER FREQUENCY:SHOT;?
     Route: 030
     Dates: start: 20171209, end: 20171209
  5. PROZAC [Concomitant]
     Active Substance: FLUOXETINE HYDROCHLORIDE
  6. ATIVAN [Concomitant]
     Active Substance: LORAZEPAM
  7. VITAMIN D [Concomitant]
     Active Substance: CHOLECALCIFEROL

REACTIONS (4)
  - Hypersensitivity [None]
  - Nausea [None]
  - Blood pressure increased [None]
  - Dizziness [None]

NARRATIVE: CASE EVENT DATE: 20171209
